FAERS Safety Report 24294775 (Version 1)
Quarter: 2024Q3

REPORT INFORMATION
  Report Type: Spontaneous
  Country: US (occurrence: US)
  Receive Date: 20240906
  Receipt Date: 20240906
  Transmission Date: 20241017
  Serious: Yes (Other)
  Sender: JOHNSON AND JOHNSON
  Company Number: US-JNJFOC-20240876577

PATIENT

DRUGS (1)
  1. UPTRAVI [Suspect]
     Active Substance: SELEXIPAG
     Indication: Product used for unknown indication
     Route: 048

REACTIONS (6)
  - Pulmonary hypertension [Unknown]
  - Spinal disorder [Unknown]
  - Pain [Unknown]
  - Dyspnoea [Unknown]
  - Stress [Unknown]
  - Adverse event [Unknown]
